FAERS Safety Report 5786342-6 (Version None)
Quarter: 2008Q2

REPORT INFORMATION
  Report Type: 
  Country: None (occurrence: None)
  Receive Date: 20080619
  Receipt Date: 20080606
  Transmission Date: 20081010
  Serious: Yes (Other)
  Sender: FDA-Public Use
  Company Number: TUK2008A00060

PATIENT
  Age: 60 Year
  Sex: Male

DRUGS (3)
  1. ACTOS [Suspect]
     Dosage: 15 MG ORAL
     Route: 048
     Dates: start: 20080411, end: 20080514
  2. METFORMIN HCL [Concomitant]
  3. SIMVASTATIN [Concomitant]

REACTIONS (2)
  - ANGER [None]
  - DEPRESSED MOOD [None]
